FAERS Safety Report 25919663 (Version 1)
Quarter: 2025Q4

REPORT INFORMATION
  Report Type: Spontaneous
  Country: CN (occurrence: CN)
  Receive Date: 20251014
  Receipt Date: 20251014
  Transmission Date: 20260118
  Serious: Yes (Hospitalization)
  Sender: BEIGENE
  Company Number: CN-BEIGENE-BGN-2025-017016

PATIENT
  Age: 54 Year
  Weight: 49 kg

DRUGS (2)
  1. TISLELIZUMAB [Suspect]
     Active Substance: TISLELIZUMAB
     Indication: Gastric cancer
     Dosage: 200 MILLIGRAM
  2. PACLITAXEL [Suspect]
     Active Substance: PACLITAXEL
     Indication: Gastric cancer
     Dosage: 100 MILLIGRAM

REACTIONS (6)
  - Myelosuppression [Unknown]
  - Nausea [Unknown]
  - Renal failure [Unknown]
  - Asthenia [Unknown]
  - Hypoproteinaemia [Unknown]
  - Trance [Unknown]
